FAERS Safety Report 7947113-5 (Version None)
Quarter: 2011Q4

REPORT INFORMATION
  Report Type: 
  Country: None (occurrence: None)
  Receive Date: 20111129
  Receipt Date: 20111122
  Transmission Date: 20120403
  Serious: Yes (Hospitalization, Disabling, Other)
  Sender: FDA-Public Use
  Company Number: DE-ROCHE-804138

PATIENT
  Sex: Male
  Weight: 95 kg

DRUGS (8)
  1. RANITIDINE HCL [Concomitant]
     Indication: PREMEDICATION
  2. PANTOPRAZOLE SODIUM [Concomitant]
     Indication: PRODUCT USED FOR UNKNOWN INDICATION
     Route: 048
  3. VALACICLOVIR [Concomitant]
     Indication: PRODUCT USED FOR UNKNOWN INDICATION
     Route: 048
  4. FORTECORTIN [Concomitant]
     Indication: PREMEDICATION
  5. RITUXIMAB [Suspect]
     Indication: B-CELL LYMPHOMA
     Route: 042
  6. BENDAMUSTINA [Concomitant]
     Indication: B-CELL LYMPHOMA
     Route: 042
  7. COTRIM DS [Concomitant]
     Indication: PRODUCT USED FOR UNKNOWN INDICATION
  8. FENISTIL [Concomitant]
     Indication: PREMEDICATION

REACTIONS (4)
  - HEMIANOPIA [None]
  - CHYLOTHORAX [None]
  - INFARCTION [None]
  - CEREBROVASCULAR ACCIDENT [None]
